FAERS Safety Report 14505189 (Version 6)
Quarter: 2018Q4

REPORT INFORMATION
  Report Type: Spontaneous
  Country: JP (occurrence: JP)
  Receive Date: 20180208
  Receipt Date: 20181024
  Transmission Date: 20190204
  Serious: Yes (Life-Threatening, Other)
  Sender: FDA-Public Use
  Company Number: JP-PFIZER INC-2018055510

PATIENT
  Age: 30 Year
  Sex: Male

DRUGS (5)
  1. DOXORUBICIN HCL [Suspect]
     Active Substance: DOXORUBICIN HYDROCHLORIDE
     Indication: ADRENOCORTICAL CARCINOMA
     Dosage: 40 MG/M2, UNK (DAY 1 EVERY 4 WEEKS)
  2. ETOPOSIDE. [Suspect]
     Active Substance: ETOPOSIDE
     Indication: ADRENOCORTICAL CARCINOMA
     Dosage: 100 MG/M2, UNK (DAY 2 TO 4 EVERY 4 WEEKS)
  3. MITOTANE [Suspect]
     Active Substance: MITOTANE
     Indication: ADRENOCORTICAL CARCINOMA
     Dosage: 3 G, DAILY (EVERY DAY)
     Route: 048
  4. MITOTANE [Suspect]
     Active Substance: MITOTANE
     Dosage: UNK  (FOUR COURSES)
     Route: 048
  5. CISPLATIN. [Suspect]
     Active Substance: CISPLATIN
     Indication: ADRENOCORTICAL CARCINOMA
     Dosage: 40 MG/M2, UNK (DAY 3, 4 EVERY 4 WEEKS)

REACTIONS (4)
  - Neutropenia [Unknown]
  - Febrile neutropenia [Recovered/Resolved]
  - Adrenal insufficiency [Unknown]
  - Hyponatraemia [Unknown]
